FAERS Safety Report 21658696 (Version 1)
Quarter: 2022Q4

REPORT INFORMATION
  Report Type: Report from Study
  Country: GB (occurrence: GB)
  Receive Date: 20221129
  Receipt Date: 20221129
  Transmission Date: 20230112
  Serious: Yes (Hospitalization)
  Sender: FDA-Public Use
  Company Number: GB-JNJFOC-20200209260

PATIENT
  Age: 75 Year
  Sex: Female

DRUGS (68)
  1. BORTEZOMIB [Suspect]
     Active Substance: BORTEZOMIB
     Indication: Plasma cell myeloma
     Dosage: CYCLE 1-8: ON DAYS 1, 4, 8 AND 11 OF 21 DAY CYCLE
     Route: 065
     Dates: start: 20170404, end: 20170512
  2. BORTEZOMIB [Suspect]
     Active Substance: BORTEZOMIB
     Dosage: CYCLE 1-8: ON DAYS 1, 4, 8 AND 11 OF 21 DAY CYCLE
     Route: 065
     Dates: start: 20170530, end: 20170926
  3. BORTEZOMIB [Suspect]
     Active Substance: BORTEZOMIB
     Dosage: CYCLE 9 AND BEYOND: ON DAYS 1, 8, 15 AND 22 OF 35 DAY CYCLE
     Route: 065
     Dates: start: 20171003, end: 20190614
  4. BORTEZOMIB [Suspect]
     Active Substance: BORTEZOMIB
     Dosage: CYCLE 9 AND BEYOND: ON DAYS 1, 8, 15 AND 22 OF 35 DAY CYCLE
     Route: 065
     Dates: start: 20190705, end: 20191018
  5. BORTEZOMIB [Suspect]
     Active Substance: BORTEZOMIB
     Dosage: CYCLE 9 AND BEYOND: ON DAYS 1, 8, 15 AND 22 OF 35 DAY CYCLE
     Route: 065
     Dates: start: 20191213
  6. VENETOCLAX [Suspect]
     Active Substance: VENETOCLAX
     Indication: Plasma cell myeloma
     Dosage: 800 MILLIGRAM, QD
     Route: 065
     Dates: start: 20170404, end: 20170522
  7. VENETOCLAX [Suspect]
     Active Substance: VENETOCLAX
     Dosage: 400 MILLIGRAM, QD
     Route: 065
     Dates: start: 20170524, end: 20191031
  8. VENETOCLAX [Suspect]
     Active Substance: VENETOCLAX
     Dosage: 600 MILLIGRAM, QD
     Route: 048
     Dates: start: 20170530, end: 20190523
  9. VENETOCLAX [Suspect]
     Active Substance: VENETOCLAX
     Dosage: 400 MILLIGRAM, QD
     Route: 065
     Dates: start: 20191213
  10. VENETOCLAX [Suspect]
     Active Substance: VENETOCLAX
     Dosage: UNK UNK (PER EYE (1 DROP,AS REQUIRED))
     Route: 065
     Dates: start: 20181225
  11. DEXAMETHASONE [Suspect]
     Active Substance: DEXAMETHASONE
     Indication: Plasma cell myeloma
     Dosage: CYCLE 1- 8: ON DAYS 1, 2, 4, 5, 8, 9, 11 AND 12 OF 21 DAY CYCLE
     Route: 048
     Dates: start: 20170404, end: 20170927
  12. DEXAMETHASONE [Suspect]
     Active Substance: DEXAMETHASONE
     Dosage: CYCLE 9 AND BEYOND: ON DAYS 1, 2, 8, 9, 15, 16, 22 AND 23 OF 35 DAY CYCLE
     Route: 065
     Dates: start: 20171003, end: 20190511
  13. DEXAMETHASONE [Suspect]
     Active Substance: DEXAMETHASONE
     Dosage: 1, 2, 8, 9, 15, 16, 22 AND 23 OF 35 DAY CYCLE
     Route: 048
     Dates: start: 20190524, end: 20191019
  14. DEXAMETHASONE [Suspect]
     Active Substance: DEXAMETHASONE
     Dosage: 1, 2, 8, 9, 15, 16, 22 AND 23 OF 35 DAY CYCLE
     Route: 048
     Dates: start: 20191213
  15. METOCLOPRAMIDE [Concomitant]
     Active Substance: METOCLOPRAMIDE
     Indication: Vomiting
     Dosage: UNK
     Route: 065
  16. METOCLOPRAMIDE [Concomitant]
     Active Substance: METOCLOPRAMIDE
     Indication: Prophylaxis of nausea and vomiting
     Dosage: 10 MILLIGRAM, PRN
     Route: 065
     Dates: start: 20170410
  17. ZOMETA [Concomitant]
     Active Substance: ZOLEDRONIC ACID
     Indication: Vertebral lesion
     Dosage: 4 MILLIGRAM, Q28D
     Route: 042
     Dates: start: 201312
  18. ACETAMINOPHEN [Concomitant]
     Active Substance: ACETAMINOPHEN
     Indication: Pneumonia
     Dosage: UNK
     Route: 065
  19. ACETAMINOPHEN [Concomitant]
     Active Substance: ACETAMINOPHEN
     Indication: Lower respiratory tract infection
     Dosage: UNK
     Route: 065
  20. ACETAMINOPHEN [Concomitant]
     Active Substance: ACETAMINOPHEN
     Indication: Headache
     Dosage: 1 GRAM, PRN
     Route: 065
     Dates: start: 20170505
  21. ACETAMINOPHEN [Concomitant]
     Active Substance: ACETAMINOPHEN
     Indication: Arthralgia
     Dosage: 1 GRAM, PRN
     Route: 065
     Dates: start: 20170410, end: 20170418
  22. ACETAMINOPHEN [Concomitant]
     Active Substance: ACETAMINOPHEN
     Indication: Pain in extremity
     Dosage: 1 GRAM, PRN
     Route: 065
     Dates: start: 20181221, end: 20181228
  23. POTASSIUM BICARBONATE\POTASSIUM CHLORIDE [Concomitant]
     Active Substance: POTASSIUM BICARBONATE\POTASSIUM CHLORIDE
     Indication: Hypokalaemia
     Dosage: 1 TABLET,1 IN 1 D
     Route: 065
     Dates: start: 20180320, end: 20180320
  24. POTASSIUM BICARBONATE\POTASSIUM CHLORIDE [Concomitant]
     Active Substance: POTASSIUM BICARBONATE\POTASSIUM CHLORIDE
     Indication: Prophylaxis
     Dosage: 4 TABLET (2 TABLET,2 IN 1 D)
     Route: 065
     Dates: start: 20170415, end: 20170415
  25. POTASSIUM BICARBONATE\POTASSIUM CHLORIDE [Concomitant]
     Active Substance: POTASSIUM BICARBONATE\POTASSIUM CHLORIDE
     Dosage: 6 TABLET (2 TABLET,3 IN 1 D)
     Route: 065
     Dates: start: 20170415, end: 20170415
  26. POTASSIUM BICARBONATE\POTASSIUM CHLORIDE [Concomitant]
     Active Substance: POTASSIUM BICARBONATE\POTASSIUM CHLORIDE
     Dosage: 2 TABLET (2 TABLET,1 IN 1 D)
     Route: 065
     Dates: start: 20170412, end: 20170412
  27. POTASSIUM BICARBONATE\POTASSIUM CHLORIDE [Concomitant]
     Active Substance: POTASSIUM BICARBONATE\POTASSIUM CHLORIDE
     Dosage: 6 TABLET (2 TABLET,3 IN 1 D)
     Route: 065
     Dates: start: 20181225, end: 20181227
  28. POTASSIUM BICARBONATE\POTASSIUM CHLORIDE [Concomitant]
     Active Substance: POTASSIUM BICARBONATE\POTASSIUM CHLORIDE
     Dosage: 2 TABLET,1 IN 3 D
     Route: 065
     Dates: start: 20171231, end: 20180104
  29. POTASSIUM BICARBONATE\POTASSIUM CHLORIDE [Concomitant]
     Active Substance: POTASSIUM BICARBONATE\POTASSIUM CHLORIDE
     Dosage: 1 TABLET (1 TABLET,1 IN 1 D)
     Route: 065
     Dates: start: 20190117, end: 20190506
  30. POTASSIUM BICARBONATE\POTASSIUM CHLORIDE [Concomitant]
     Active Substance: POTASSIUM BICARBONATE\POTASSIUM CHLORIDE
     Dosage: 2 TABLET,1 IN 1 D
     Route: 065
     Dates: start: 20181224, end: 20181224
  31. POTASSIUM BICARBONATE\POTASSIUM CHLORIDE [Concomitant]
     Active Substance: POTASSIUM BICARBONATE\POTASSIUM CHLORIDE
     Dosage: 6 TABLET (2 TABLET,3 IN 1 D)
     Route: 065
     Dates: start: 20180321, end: 20180325
  32. POTASSIUM BICARBONATE\POTASSIUM CHLORIDE [Concomitant]
     Active Substance: POTASSIUM BICARBONATE\POTASSIUM CHLORIDE
     Dosage: (2 TABLET,AS REQUIRED)
     Route: 048
     Dates: start: 20190523
  33. ALBUTEROL [Concomitant]
     Active Substance: ALBUTEROL
     Indication: Lower respiratory tract infection
     Dosage: 200 MICROGRAM
     Route: 065
     Dates: end: 20181220
  34. ALBUTEROL [Concomitant]
     Active Substance: ALBUTEROL
     Indication: Asthma
     Dosage: UNK
     Route: 065
  35. ALBUTEROL [Concomitant]
     Active Substance: ALBUTEROL
     Indication: Pneumonia
     Dosage: 2.5 MILLIGRAM, PRN
     Route: 048
     Dates: start: 20181221
  36. ALBUTEROL [Concomitant]
     Active Substance: ALBUTEROL
     Indication: Dyspnoea
     Dosage: 4 PUFF (2 PUFF,2 IN 1 D)
     Route: 048
  37. Immunoglobulin [Concomitant]
     Indication: Infection prophylaxis
     Dosage: 20 GRAM, Q3W
     Route: 065
     Dates: start: 20190107
  38. Immunoglobulin [Concomitant]
     Dosage: 20 GRAM, Q3W
     Route: 065
     Dates: start: 20180514, end: 201811
  39. MAGNESIUM [Concomitant]
     Active Substance: MAGNESIUM
     Indication: Muscle spasms
     Dosage: 1 SACHET,1 IN 1 D
     Route: 065
     Dates: start: 20171221, end: 20190506
  40. MAGNESIUM [Concomitant]
     Active Substance: MAGNESIUM
     Indication: Hypomagnesaemia
     Dosage: 1 SACHET,1 IN 1 D
     Route: 065
     Dates: start: 201906
  41. MAGNESIUM [Concomitant]
     Active Substance: MAGNESIUM
     Dosage: UNK
     Route: 065
  42. GAVISCON [Concomitant]
     Active Substance: ALUMINUM HYDROXIDE\MAGNESIUM CARBONATE
     Dosage: 5 MILLILITER, PRN
     Route: 065
     Dates: start: 20170626
  43. FLUDROCORTISONE [Concomitant]
     Active Substance: FLUDROCORTISONE
     Indication: Orthostatic hypotension
     Dosage: 50 MICROGRAM, QD
     Route: 065
     Dates: start: 20190418
  44. COTRIMOXAZOLE [Concomitant]
     Active Substance: SULFAMETHOXAZOLE\TRIMETHOPRIM
     Indication: Infection prophylaxis
     Dosage: 3840 MILLIGRAM, QD
     Route: 065
     Dates: start: 20170417, end: 20170417
  45. COTRIMOXAZOLE [Concomitant]
     Active Substance: SULFAMETHOXAZOLE\TRIMETHOPRIM
     Indication: Pneumonia
     Dosage: 480 MILLIGRAM, QD
     Route: 065
     Dates: start: 20191011
  46. COTRIMOXAZOLE [Concomitant]
     Active Substance: SULFAMETHOXAZOLE\TRIMETHOPRIM
     Dosage: 480 MILLIGRAM, QD
     Route: 065
     Dates: start: 20190322, end: 20191004
  47. COTRIMOXAZOLE [Concomitant]
     Active Substance: SULFAMETHOXAZOLE\TRIMETHOPRIM
     Dosage: 960 MILLIGRAM, QD
     Route: 048
     Dates: start: 20170424, end: 20170427
  48. COTRIMOXAZOLE [Concomitant]
     Active Substance: SULFAMETHOXAZOLE\TRIMETHOPRIM
     Dosage: 960 MILLIGRAM, QD
     Route: 048
     Dates: start: 20170418, end: 20170418
  49. COTRIMOXAZOLE [Concomitant]
     Active Substance: SULFAMETHOXAZOLE\TRIMETHOPRIM
     Dosage: 3840 MILLIGRAM, QD
     Route: 065
     Dates: start: 20170419, end: 20170424
  50. BENZYDAMINE [Concomitant]
     Active Substance: BENZYDAMINE
     Indication: Mouth ulceration
     Dosage: 5-10 ML (AS REQUIRED)
     Route: 065
     Dates: start: 20170619
  51. BENZYDAMINE [Concomitant]
     Active Substance: BENZYDAMINE
     Dosage: UNK
     Route: 065
  52. CALCIUM CARBONATE\CHOLECALCIFEROL [Concomitant]
     Active Substance: CALCIUM CARBONATE\CHOLECALCIFEROL
     Indication: Mineral supplementation
     Dosage: UNK
     Route: 065
  53. LEVOFLOXACIN [Concomitant]
     Active Substance: LEVOFLOXACIN
     Indication: Antibiotic prophylaxis
     Dosage: 500 MILLIGRAM, QD
     Route: 065
     Dates: start: 20190322, end: 20191004
  54. LEVOFLOXACIN [Concomitant]
     Active Substance: LEVOFLOXACIN
     Dosage: 500 MILLIGRAM, QD
     Route: 065
     Dates: start: 20191011
  55. OMEPRAZOLE [Concomitant]
     Active Substance: OMEPRAZOLE
     Indication: Hiatus hernia
     Dosage: 20 MILLIGRAM, QD
     Route: 065
     Dates: start: 20181228
  56. OMEPRAZOLE [Concomitant]
     Active Substance: OMEPRAZOLE
     Indication: Oesophageal ulcer
     Dosage: 20 MG,1 IN 1 D
     Route: 065
     Dates: start: 201609, end: 201710
  57. OMEPRAZOLE [Concomitant]
     Active Substance: OMEPRAZOLE
     Dosage: 20 MG,2 IN 1 D
     Route: 065
     Dates: start: 201710, end: 20181224
  58. CETIRIZINE [Concomitant]
     Active Substance: CETIRIZINE HYDROCHLORIDE
     Indication: Seasonal allergy
     Dosage: 10 MILLIGRAM, PRN
     Route: 065
     Dates: start: 20170422
  59. BONJELA [Concomitant]
     Active Substance: CETALKONIUM CHLORIDE\CHOLINE SALICYLATE\MENTHOL
     Indication: Mouth ulceration
     Dosage: 1 DOSAGE FORM, PRN
     Route: 065
     Dates: start: 20170619
  60. BONJELA [Concomitant]
     Active Substance: CETALKONIUM CHLORIDE\CHOLINE SALICYLATE\MENTHOL
     Dosage: UNK
     Route: 065
  61. CHLORHEXIDINE GLUCONATE [Concomitant]
     Active Substance: CHLORHEXIDINE GLUCONATE
     Indication: Mouth ulceration
     Dosage: 5-10 ML (AS REQUIRED)
     Route: 065
     Dates: start: 20170604
  62. CHLORHEXIDINE GLUCONATE [Concomitant]
     Active Substance: CHLORHEXIDINE GLUCONATE
     Dosage: UNK
     Route: 065
  63. IMODIUM [Concomitant]
     Active Substance: LOPERAMIDE HYDROCHLORIDE
     Indication: Antidiarrhoeal supportive care
     Dosage: 2 MILLIGRAM, PRN
     Route: 065
     Dates: start: 201705
  64. BECLOMETHASONE DIPROPIONATE [Concomitant]
     Active Substance: BECLOMETHASONE DIPROPIONATE
     Indication: Asthma
     Dosage: 1600 MICROGRAM, QD
     Route: 065
     Dates: start: 1997
  65. MINERAL OIL\PARAFFIN [Concomitant]
     Active Substance: MINERAL OIL\PARAFFIN
     Indication: Dry skin
     Dosage: 1 DOSAGE FORM, PRN
     Route: 061
     Dates: start: 20181225
  66. POLYETHYLENE GLYCOL 3350\POTASSIUM CHLORIDE\SODIUM BICARBONATE\SODIUM [Concomitant]
     Active Substance: POLYETHYLENE GLYCOL 3350\POTASSIUM CHLORIDE\SODIUM BICARBONATE\SODIUM CHLORIDE
     Indication: Constipation
     Dosage: 1 TABLET,AS REQUIRED
     Route: 065
     Dates: start: 20190626
  67. VENTOLIN [Concomitant]
     Active Substance: ALBUTEROL SULFATE
     Indication: Asthma
     Dosage: 4 PUFF (2 PUFF,2 IN 1 D)
     Route: 065
  68. CARBOMER [Concomitant]
     Active Substance: CARBOMER
     Indication: Dry eye
     Dosage: PER EYE (1 DROP,AS REQUIRED)
     Route: 061
     Dates: start: 20181225

REACTIONS (1)
  - Rhinovirus infection [Recovered/Resolved]

NARRATIVE: CASE EVENT DATE: 20191031
